FAERS Safety Report 13602656 (Version 1)
Quarter: 2017Q2

REPORT INFORMATION
  Report Type: Spontaneous
  Country: FR (occurrence: FR)
  Receive Date: 20170601
  Receipt Date: 20170601
  Transmission Date: 20170830
  Serious: Yes (Hospitalization, Congenital Anomaly)
  Sender: FDA-Public Use
  Company Number: FR-PFIZER INC-2017228291

PATIENT
  Sex: Female

DRUGS (6)
  1. SERESTA [Concomitant]
     Active Substance: OXAZEPAM
     Dosage: UNK
     Route: 064
     Dates: start: 201302
  2. CELESTENE /00008501/ [Concomitant]
     Active Substance: BETAMETHASONE
     Dosage: UNK
     Route: 064
     Dates: start: 20130505, end: 20130505
  3. TRACTOCILE [Concomitant]
     Active Substance: ATOSIBAN
     Dosage: UNK
     Route: 064
     Dates: start: 20130505, end: 20130505
  4. NORSET [Suspect]
     Active Substance: MIRTAZAPINE
     Indication: DEPRESSION
     Dosage: 1 DF, 1X/DAY
     Route: 064
     Dates: start: 20121010, end: 20130505
  5. XANAX [Suspect]
     Active Substance: ALPRAZOLAM
     Indication: DEPRESSION
     Dosage: 0.5 MG, 2X/DAY
     Route: 064
     Dates: start: 20121010, end: 20130205
  6. CLAMOXYL /00249601/ [Concomitant]
     Active Substance: AMOXICILLIN
     Dosage: UNK
     Route: 064
     Dates: start: 20130505, end: 20130505

REACTIONS (7)
  - Premature baby [Unknown]
  - Neonatal respiratory distress syndrome [Unknown]
  - Jaundice [Unknown]
  - Congenital choroid plexus cyst [Unknown]
  - Maternal exposure during pregnancy [Unknown]
  - Talipes [Unknown]
  - Vulval disorder [Unknown]

NARRATIVE: CASE EVENT DATE: 20121010
